FAERS Safety Report 8673222 (Version 3)
Quarter: 2012Q4

REPORT INFORMATION
  Report Type: 
  Country: US (occurrence: US)
  Receive Date: 20120719
  Receipt Date: 20120907
  Transmission Date: 20130627
  Serious: Yes (Other)
  Sender: FDA-Public Use
  Company Number: US-ASTRAZENECA-2012SE49163

PATIENT
  Age: 65 Year
  Sex: Female
  Weight: 98.4 kg

DRUGS (14)
  1. SYMBICORT [Suspect]
     Indication: ASTHMA
     Dosage: 160MCG/4.5MCG TWO PUFFS BID
     Route: 055
     Dates: start: 2010
  2. SYMBICORT [Suspect]
     Indication: CHRONIC OBSTRUCTIVE PULMONARY DISEASE
     Dosage: 160MCG/4.5MCG TWO PUFFS BID
     Route: 055
     Dates: start: 2010
  3. DIPHENHYDRAMINE [Concomitant]
     Indication: MULTIPLE ALLERGIES
     Route: 048
  4. SINGULAIR [Concomitant]
     Indication: MULTIPLE ALLERGIES
     Route: 048
  5. LYRICA [Concomitant]
     Indication: FIBROMYALGIA
  6. METFORMIN [Concomitant]
     Indication: DIABETES MELLITUS
  7. BUPROPION [Concomitant]
     Indication: DEPRESSION
  8. ESCITALOPRAM [Concomitant]
     Indication: DEPRESSION
  9. QUETIAPINE [Concomitant]
     Indication: DEPRESSION
  10. NAPROXEN [Concomitant]
     Indication: ARTHRITIS
  11. LANTUS [Concomitant]
     Indication: DIABETES MELLITUS
  12. VENTOLIN [Concomitant]
     Indication: ASTHMA
     Dosage: PRN
  13. ALBUTEROL [Concomitant]
     Indication: ASTHMA
     Dosage: PRN
  14. MUCINEX [Concomitant]
     Indication: HYPERSENSITIVITY

REACTIONS (8)
  - Chronic obstructive pulmonary disease [Unknown]
  - Transient ischaemic attack [Unknown]
  - Drug ineffective [Unknown]
  - Malaise [Not Recovered/Not Resolved]
  - Bronchitis [Unknown]
  - Bronchitis chronic [Unknown]
  - Drug effect incomplete [Unknown]
  - Drug dose omission [Unknown]
